FAERS Safety Report 5316182-3 (Version None)
Quarter: 2007Q2

REPORT INFORMATION
  Report Type: 
  Country: None (occurrence: None)
  Receive Date: 20070503
  Receipt Date: 20070423
  Transmission Date: 20071010
  Serious: Yes (Other)
  Sender: FDA-Public Use
  Company Number: JP-PFIZER INC-2007031332

PATIENT
  Age: 39 Year
  Sex: Female

DRUGS (2)
  1. GABAPEN [Suspect]
     Dosage: DAILY DOSE:1200MG
     Route: 048
     Dates: start: 20061206
  2. ALL OTHER THERAPEUTIC PRODUCTS [Concomitant]

REACTIONS (2)
  - OBSESSIVE THOUGHTS [None]
  - PERSECUTORY DELUSION [None]
